FAERS Safety Report 13259859 (Version 2)
Quarter: 2017Q1

REPORT INFORMATION
  Report Type: Spontaneous
  Country: CA (occurrence: CA)
  Receive Date: 20170222
  Receipt Date: 20170302
  Transmission Date: 20170428
  Serious: No
  Sender: FDA-Public Use
  Company Number: CA-PFIZER INC-2017061524

PATIENT
  Age: 52 Year
  Sex: Female

DRUGS (2)
  1. XELJANZ [Suspect]
     Active Substance: TOFACITINIB CITRATE
     Indication: RHEUMATOID ARTHRITIS
     Dosage: 5 MG, 2X/DAY
     Route: 048
     Dates: start: 20170205, end: 20170225
  2. PREMARIN [Suspect]
     Active Substance: ESTROGENS, CONJUGATED
     Dosage: UNK

REACTIONS (12)
  - Sinusitis [Not Recovered/Not Resolved]
  - Dyspepsia [Unknown]
  - Dry mouth [Recovered/Resolved]
  - Decreased appetite [Unknown]
  - Ingrowing nail [Unknown]
  - Weight decreased [Unknown]
  - Peripheral swelling [Not Recovered/Not Resolved]
  - Abdominal pain upper [Recovered/Resolved]
  - Diarrhoea [Unknown]
  - Weight increased [Unknown]
  - Flatulence [Not Recovered/Not Resolved]
  - Vomiting [Unknown]

NARRATIVE: CASE EVENT DATE: 201702
